FAERS Safety Report 5290641-4 (Version None)
Quarter: 2007Q2

REPORT INFORMATION
  Report Type: 
  Country: None (occurrence: None)
  Receive Date: 20070409
  Receipt Date: 20070404
  Transmission Date: 20071010
  Serious: Yes (Other)
  Sender: FDA-Public Use
  Company Number: US-GLAXOSMITHKLINE-A0645984A

PATIENT
  Age: 46 Year
  Sex: Female

DRUGS (7)
  1. ADVAIR DISKUS 100/50 [Suspect]
     Indication: DRUG USE FOR UNKNOWN INDICATION
     Route: 055
     Dates: start: 20070101
  2. VESICARE [Suspect]
     Dosage: 5MG PER DAY
     Route: 048
     Dates: start: 20070221
  3. SYNTHROID [Concomitant]
  4. CYTOMEL [Concomitant]
  5. PROGESTERONE [Concomitant]
  6. TESTOSTERONE [Concomitant]
  7. ESTRADIOL [Concomitant]

REACTIONS (5)
  - BACK PAIN [None]
  - FEELING JITTERY [None]
  - NERVOUSNESS [None]
  - POLLAKIURIA [None]
  - VISUAL ACUITY REDUCED [None]
